FAERS Safety Report 9983155 (Version 1)
Quarter: 2014Q1

REPORT INFORMATION
  Report Type: Spontaneous
  Country: US (occurrence: US)
  Receive Date: 20140307
  Receipt Date: 20140307
  Transmission Date: 20141002
  Serious: Yes (Hospitalization)
  Sender: FDA-Public Use
  Company Number: US-PFIZER INC-2014066092

PATIENT
  Age: 61 Year
  Sex: Female
  Weight: 63.49 kg

DRUGS (6)
  1. LYRICA [Suspect]
     Indication: PARAESTHESIA
     Dosage: 150 MG, 3X/DAY
     Route: 048
     Dates: start: 201106
  2. LYRICA [Suspect]
     Indication: PAIN
  3. LYRICA [Suspect]
     Indication: NEURALGIA
  4. LYRICA [Suspect]
     Indication: HYPOAESTHESIA
  5. LYRICA [Suspect]
     Indication: HYPOAESTHESIA
  6. PERCOCET [Concomitant]
     Indication: PAIN
     Dosage: UNK

REACTIONS (4)
  - Dysstasia [Unknown]
  - Movement disorder [Unknown]
  - Pain [Unknown]
  - Hypoaesthesia [Unknown]
